FAERS Safety Report 20976944 (Version 1)
Quarter: 2022Q2

REPORT INFORMATION
  Report Type: Spontaneous
  Country: US (occurrence: None)
  Receive Date: 20220617
  Receipt Date: 20220617
  Transmission Date: 20220721
  Serious: Yes (Life-Threatening, Other)
  Sender: FDA-Public Use
  Company Number: None

PATIENT
  Age: 66 Year
  Sex: Male
  Weight: 85.7 kg

DRUGS (1)
  1. ISOVUE 370 [Suspect]
     Active Substance: IOPAMIDOL
     Indication: Imaging procedure
     Dosage: OTHER FREQUENCY : ONE TIME DOSE;?
     Route: 042
     Dates: start: 20220504, end: 20220504

REACTIONS (3)
  - Pruritus [None]
  - Urticaria [None]
  - Oxygen saturation decreased [None]

NARRATIVE: CASE EVENT DATE: 20220504
